FAERS Safety Report 8535547-X (Version None)
Quarter: 2012Q3

REPORT INFORMATION
  Report Type: 
  Country: None (occurrence: None)
  Receive Date: 20120725
  Receipt Date: 20120718
  Transmission Date: 20120928
  Serious: Yes (Other)
  Sender: FDA-Public Use
  Company Number: US-BAYER-2011-018271

PATIENT
  Age: 27 Year
  Sex: Female

DRUGS (1)
  1. MIRENA [Suspect]
     Dosage: 20 ?G/D, UNK
     Route: 015
     Dates: start: 20101026, end: 20120711

REACTIONS (7)
  - MENORRHAGIA [None]
  - ABNORMAL WEIGHT GAIN [None]
  - WITHDRAWAL SYNDROME [None]
  - FOOD CRAVING [None]
  - VAGINAL HAEMORRHAGE [None]
  - DRUG WITHDRAWAL HEADACHE [None]
  - ASTHENIA [None]
